FAERS Safety Report 9643913 (Version 1)
Quarter: 2013Q4

REPORT INFORMATION
  Report Type: Spontaneous
  Country: AU (occurrence: None)
  Receive Date: 20131023
  Receipt Date: 20131023
  Transmission Date: 20140711
  Serious: Yes (Other)
  Sender: FDA-Public Use
  Company Number: AUR-APL-2013-08673

PATIENT
  Sex: Male

DRUGS (4)
  1. QUETIAPINE [Suspect]
     Indication: DEMENTIA ALZHEIMER^S TYPE
  2. MIRTAZAPINE [Suspect]
     Indication: ANTIDEPRESSANT THERAPY
  3. ESCITALOPRAM [Suspect]
     Indication: DEMENTIA ALZHEIMER^S TYPE
  4. SODIUM VALPROATE [Suspect]
     Indication: DEMENTIA ALZHEIMER^S TYPE

REACTIONS (6)
  - Partial seizures [None]
  - Hallucination, visual [None]
  - Sedation [None]
  - Hypernatraemia [None]
  - Agitation [None]
  - Convulsive threshold lowered [None]
